FAERS Safety Report 6837660-1 (Version None)
Quarter: 2010Q3

REPORT INFORMATION
  Report Type: 
  Country: None (occurrence: None)
  Receive Date: 20100713
  Receipt Date: 20070517
  Transmission Date: 20110219
  Serious: No
  Sender: FDA-Public Use
  Company Number: US-PFIZER INC-2007041223

PATIENT
  Sex: Male
  Weight: 117.9 kg

DRUGS (15)
  1. CHANTIX [Suspect]
     Indication: SMOKING CESSATION THERAPY
     Dates: start: 20070501
  2. PREVACID [Concomitant]
  3. MULTI-VITAMINS [Concomitant]
  4. CLARINEX [Concomitant]
  5. ACETYLSALICYLIC ACID ENTERIC COATED [Concomitant]
  6. WELCHOL [Concomitant]
  7. NITROGLYCERIN [Concomitant]
  8. WELLBUTRIN [Concomitant]
  9. COLACE [Concomitant]
  10. VYTORIN [Concomitant]
  11. TOPROL-XL [Concomitant]
  12. PAXIL [Concomitant]
  13. ZYPREXA [Concomitant]
  14. ATARAX [Concomitant]
  15. ALKALOL [Concomitant]
     Dates: start: 20070501

REACTIONS (1)
  - VOMITING [None]
